FAERS Safety Report 8605621-8 (Version None)
Quarter: 2012Q3

REPORT INFORMATION
  Report Type: 
  Country: None (occurrence: None)
  Receive Date: 20120820
  Receipt Date: 20120806
  Transmission Date: 20120928
  Serious: Yes (Other)
  Sender: FDA-Public Use
  Company Number: ES-TEVA-352242ISR

PATIENT
  Age: 25 Year
  Sex: Female

DRUGS (1)
  1. DRETINELLE 0.02 MG/3MG COMPRIMIDOS RECUBIERTOS CON PELICULA EFG,1 BLIS [Suspect]
     Indication: ORAL CONTRACEPTION
     Dosage: .02 MILLIGRAM DAILY;
     Route: 048
     Dates: start: 20120201

REACTIONS (1)
  - PYOGENIC GRANULOMA [None]
